FAERS Safety Report 13368330 (Version 4)
Quarter: 2017Q3

REPORT INFORMATION
  Report Type: Report from Study
  Country: JP (occurrence: JP)
  Receive Date: 20170324
  Receipt Date: 20170801
  Transmission Date: 20171127
  Serious: Yes (Death, Hospitalization)
  Sender: FDA-Public Use
  Company Number: PHJP2017JP009258

PATIENT
  Age: 73 Year
  Sex: Male

DRUGS (1)
  1. ZYKADIA [Suspect]
     Active Substance: CERITINIB
     Indication: NON-SMALL CELL LUNG CANCER STAGE IV
     Dosage: 450 MG, QD
     Route: 048
     Dates: start: 201606, end: 20160620

REACTIONS (3)
  - Dyspnoea [Fatal]
  - Interstitial lung disease [Fatal]
  - Haemoptysis [Fatal]

NARRATIVE: CASE EVENT DATE: 201606
